FAERS Safety Report 8183971-X (Version None)
Quarter: 2012Q1

REPORT INFORMATION
  Report Type: 
  Country: None (occurrence: None)
  Receive Date: 20120203
  Receipt Date: 20110606
  Transmission Date: 20120608
  Serious: Yes (Other)
  Sender: FDA-Public Use
  Company Number: 117895

PATIENT
  Age: 13 Year
  Sex: Female

DRUGS (1)
  1. DAUNORUBICIN HCL [Suspect]
     Indication: PRECURSOR B-LYMPHOBLASTIC LYMPHOMA
     Dosage: 70MG IV
     Route: 042
     Dates: start: 20110304

REACTIONS (1)
  - ALANINE AMINOTRANSFERASE INCREASED [None]
